FAERS Safety Report 9454201 (Version 1)
Quarter: 2013Q3

REPORT INFORMATION
  Report Type: Spontaneous
  Country: IT (occurrence: IT)
  Receive Date: 20130812
  Receipt Date: 20130812
  Transmission Date: 20140515
  Serious: Yes (Hospitalization, Other)
  Sender: FDA-Public Use
  Company Number: IT-ELI_LILLY_AND_COMPANY-IT201308001134

PATIENT
  Age: 78 Year
  Sex: Male

DRUGS (9)
  1. HUMALOG LISPRO [Suspect]
     Indication: DIABETES MELLITUS
     Dosage: 30 U, QD
     Route: 058
     Dates: start: 20130101, end: 20130629
  2. LANTUS [Suspect]
     Indication: DIABETES MELLITUS
     Dosage: 15 U, QD
     Route: 058
     Dates: start: 20130101, end: 20130629
  3. DUOPLAVIN [Suspect]
     Indication: CORONARY ARTERIAL STENT INSERTION
     Dosage: 1 DF, QD
     Route: 048
     Dates: start: 20130101, end: 20130629
  4. RAMIPRIL [Concomitant]
     Dosage: 5 MG, UNKNOWN
     Route: 048
  5. CARVEDILOL [Concomitant]
     Dosage: 6.25 MG, UNKNOWN
     Route: 048
  6. ATORVASTATIN [Concomitant]
     Dosage: 40 MG, UNKNOWN
     Route: 048
  7. PEPTAZOL [Concomitant]
     Dosage: 40 MG, UNKNOWN
     Route: 048
  8. NORVASC [Concomitant]
     Dosage: 5 MG, UNKNOWN
     Route: 048
  9. LASIX [Concomitant]
     Dosage: 25 MG, UNKNOWN
     Route: 048

REACTIONS (2)
  - Head injury [Recovering/Resolving]
  - Hypoglycaemia [Recovering/Resolving]
